FAERS Safety Report 9232254 (Version 7)
Quarter: 2016Q2

REPORT INFORMATION
  Report Type: Spontaneous
  Country: US (occurrence: US)
  Receive Date: 20130415
  Receipt Date: 20160629
  Transmission Date: 20160815
  Serious: Yes (Other)
  Sender: FDA-Public Use
  Company Number: US-009507513-1304USA003834

PATIENT
  Sex: Male
  Weight: 92.52 kg

DRUGS (1)
  1. PROPECIA [Suspect]
     Active Substance: FINASTERIDE
     Indication: ALOPECIA
     Dosage: 1 MG, QD
     Route: 048
     Dates: start: 199601, end: 200507

REACTIONS (20)
  - Hypercholesterolaemia [Unknown]
  - Organic erectile dysfunction [Unknown]
  - Proctalgia [Unknown]
  - Benign prostatic hyperplasia [Unknown]
  - Hyperlipidaemia [Unknown]
  - Hypertension [Unknown]
  - Depression [Not Recovered/Not Resolved]
  - Libido disorder [Unknown]
  - Chronic kidney disease [Unknown]
  - Testicular failure [Unknown]
  - Malaise [Recovered/Resolved]
  - Glucose tolerance impaired [Unknown]
  - Sexual dysfunction [Not Recovered/Not Resolved]
  - Semen volume decreased [Unknown]
  - Temperature intolerance [Unknown]
  - Gastrooesophageal reflux disease [Unknown]
  - Influenza [Unknown]
  - Diabetes mellitus [Unknown]
  - Cognitive disorder [Not Recovered/Not Resolved]
  - Hot flush [Unknown]

NARRATIVE: CASE EVENT DATE: 199805
